FAERS Safety Report 5706798-4 (Version None)
Quarter: 2008Q2

REPORT INFORMATION
  Report Type: 
  Country: None (occurrence: None)
  Receive Date: 20080415
  Receipt Date: 20080415
  Transmission Date: 20081010
  Serious: Yes (Other)
  Sender: FDA-Public Use
  Company Number: None

PATIENT
  Sex: Female
  Weight: 63.5036 kg

DRUGS (1)
  1. ZOLPIDEM 10 MG ROXANE [Suspect]
     Indication: INSOMNIA
     Dosage: 10MG AT BEDTIME AS NEED PO
     Route: 048
     Dates: start: 20080329, end: 20080403

REACTIONS (2)
  - INSOMNIA [None]
  - PHARMACEUTICAL PRODUCT COMPLAINT [None]
